FAERS Safety Report 6860766-8 (Version None)
Quarter: 2010Q3

REPORT INFORMATION
  Report Type: 
  Country: None (occurrence: None)
  Receive Date: 20100715
  Receipt Date: 20100715
  Transmission Date: 20110219
  Serious: Yes (Other)
  Sender: FDA-Public Use
  Company Number: 1022556-2010-00044

PATIENT
  Age: 71 Year
  Sex: Male
  Weight: 72.5755 kg

DRUGS (5)
  1. ICY HOT CREAM [Suspect]
     Indication: MYALGIA
     Dosage: TOPICAL, ONCE
     Route: 061
  2. ARTHROTEC [Concomitant]
  3. ATACE HCT [Concomitant]
  4. PANTOPRAZOLE [Concomitant]
  5. XATRAL [Concomitant]

REACTIONS (2)
  - EXPIRED DRUG ADMINISTERED [None]
  - RASH [None]
